FAERS Safety Report 7739359-6 (Version None)
Quarter: 2011Q3

REPORT INFORMATION
  Report Type: 
  Country: None (occurrence: None)
  Receive Date: 20110909
  Receipt Date: 20110831
  Transmission Date: 20111222
  Serious: Yes (Hospitalization)
  Sender: FDA-Public Use
  Company Number: US-US-EMD SERONO, INC.-7080542

PATIENT
  Sex: Male

DRUGS (1)
  1. REBIF [Suspect]
     Indication: MULTIPLE SCLEROSIS
     Dates: start: 20080530, end: 20110101

REACTIONS (3)
  - INJECTION SITE INDURATION [None]
  - URINARY TRACT INFECTION [None]
  - INJECTION SITE ERYTHEMA [None]
